FAERS Safety Report 24566244 (Version 1)
Quarter: 2024Q4

REPORT INFORMATION
  Report Type: Spontaneous
  Country: MX (occurrence: MX)
  Receive Date: 20241030
  Receipt Date: 20241030
  Transmission Date: 20250114
  Serious: Yes (Hospitalization)
  Sender: ROCHE
  Company Number: MX-ROCHE-2571905

PATIENT
  Age: 29 Year
  Sex: Female

DRUGS (4)
  1. MYCOPHENOLATE MOFETIL [Suspect]
     Active Substance: MYCOPHENOLATE MOFETIL
     Indication: Systemic lupus erythematosus
     Route: 048
  2. PREDNISONE [Suspect]
     Active Substance: PREDNISONE
     Indication: Systemic lupus erythematosus
     Route: 048
  3. HYDROXYCHLOROQUINE [Suspect]
     Active Substance: HYDROXYCHLOROQUINE
     Indication: Systemic lupus erythematosus
     Dosage: 200 MG/DAY PO FOR 2 MONTHS
     Route: 048
  4. LEVOFLOXACIN [Concomitant]
     Active Substance: LEVOFLOXACIN
     Route: 048

REACTIONS (6)
  - Pyomyositis [Recovering/Resolving]
  - Brain abscess [Recovering/Resolving]
  - Liver abscess [Recovering/Resolving]
  - Perinephric abscess [Recovering/Resolving]
  - Pneumonia [Recovering/Resolving]
  - Bacterial endophthalmitis [Recovering/Resolving]
